FAERS Safety Report 4868682-8 (Version None)
Quarter: 2005Q4

REPORT INFORMATION
  Report Type: 
  Country: None (occurrence: None)
  Receive Date: 20051223
  Receipt Date: 20051215
  Transmission Date: 20060501
  Serious: Yes (Other)
  Sender: FDA-Public Use
  Company Number: 2005159925

PATIENT
  Sex: Female

DRUGS (1)
  1. DETROL [Suspect]
     Indication: BLADDER DISORDER

REACTIONS (2)
  - DENTAL CARIES [None]
  - DRY MOUTH [None]
